FAERS Safety Report 15120366 (Version 1)
Quarter: 2018Q3

REPORT INFORMATION
  Report Type: Spontaneous
  Country: US (occurrence: US)
  Receive Date: 20180709
  Receipt Date: 20180709
  Transmission Date: 20181010
  Serious: No
  Sender: FDA-Public Use
  Company Number: US-BAYER-2018-120394

PATIENT
  Age: 37 Year
  Sex: Female

DRUGS (2)
  1. MIRENA [Suspect]
     Active Substance: LEVONORGESTREL
     Dosage: 20 MCG/24HR, CONT
     Route: 015
     Dates: start: 2017, end: 2017
  2. KYLEENA [Suspect]
     Active Substance: LEVONORGESTREL
     Indication: MENORRHAGIA
     Dosage: 17.5 MCG/24HR, CONT
     Route: 015
     Dates: start: 20180611

REACTIONS (33)
  - Dizziness [None]
  - Feeling hot [None]
  - Nausea [Not Recovered/Not Resolved]
  - Menstrual disorder [None]
  - Procedural pain [None]
  - Endometrial atrophy [None]
  - Migraine [Not Recovered/Not Resolved]
  - Vaginal haemorrhage [None]
  - Depressed mood [None]
  - Abdominal pain lower [None]
  - Menorrhagia [Recovered/Resolved]
  - Dysmenorrhoea [Not Recovered/Not Resolved]
  - Gingival pain [Not Recovered/Not Resolved]
  - Abdominal pain [Not Recovered/Not Resolved]
  - Oral mucosal exfoliation [Not Recovered/Not Resolved]
  - Hot flush [None]
  - Headache [Not Recovered/Not Resolved]
  - Vulvovaginal pain [None]
  - Breast pain [Recovered/Resolved]
  - Off label use [None]
  - Photophobia [Not Recovered/Not Resolved]
  - Fatigue [None]
  - Vaginal discharge [None]
  - Menorrhagia [Recovering/Resolving]
  - Drug ineffective for unapproved indication [None]
  - Skin exfoliation [None]
  - Pain [None]
  - Hypomenorrhoea [Recovered/Resolved]
  - Hypomenorrhoea [Recovered/Resolved]
  - Product use in unapproved indication [None]
  - Hyperhidrosis [None]
  - Breast mass [Recovered/Resolved]
  - Adverse drug reaction [None]

NARRATIVE: CASE EVENT DATE: 201806
